FAERS Safety Report 4553401-5 (Version None)
Quarter: 2005Q1

REPORT INFORMATION
  Report Type: 
  Country: None (occurrence: None)
  Receive Date: 20050112
  Receipt Date: 20041230
  Transmission Date: 20050727
  Serious: Yes (Hospitalization)
  Sender: FDA-Public Use
  Company Number: HQWYE201316JUL04

PATIENT
  Age: 48 Year
  Sex: Female
  Weight: 62.65 kg

DRUGS (1)
  1. PREMPRO [Suspect]
     Indication: HORMONE REPLACEMENT THERAPY
     Dates: start: 19930101, end: 19971201

REACTIONS (5)
  - DEEP VEIN THROMBOSIS [None]
  - GASTROINTESTINAL DISORDER [None]
  - PULMONARY EMBOLISM [None]
  - SCAR [None]
  - THROMBOSIS [None]
